FAERS Safety Report 5035490-7 (Version None)
Quarter: 2006Q2

REPORT INFORMATION
  Report Type: 
  Country: None (occurrence: None)
  Receive Date: 20060622
  Receipt Date: 20060615
  Transmission Date: 20061013
  Serious: Yes (Hospitalization)
  Sender: FDA-Public Use
  Company Number: 163-20785-06050213

PATIENT
  Age: 50 Year
  Sex: Female

DRUGS (1)
  1. THALOMID [Suspect]
     Indication: AMYLOIDOSIS
     Dosage: 50 MG, DAILY, ORAL
     Route: 048
     Dates: start: 20060327

REACTIONS (1)
  - CARDIOMYOPATHY [None]
